FAERS Safety Report 11489433 (Version 1)
Quarter: 2015Q3

REPORT INFORMATION
  Report Type: Spontaneous
  Country: US (occurrence: US)
  Receive Date: 20150910
  Receipt Date: 20150910
  Transmission Date: 20151125
  Serious: No
  Sender: FDA-Public Use
  Company Number: US-ROCHE-1450435

PATIENT
  Age: 32 Year
  Sex: Female

DRUGS (7)
  1. RIBAVIRIN. [Suspect]
     Active Substance: RIBAVIRIN
     Indication: HEPATITIS C
     Route: 048
     Dates: start: 200201
  2. PAROXETINE [Concomitant]
     Active Substance: PAROXETINE\PAROXETINE HYDROCHLORIDE
     Dosage: LOWERED DOSE IN RESPONSE TO EVENTS OF RACING THOUGHTS, ELEVATED MOOD AND GRANDIOSITY.
     Route: 065
  3. LITHIUM CARBONATE. [Concomitant]
     Active Substance: LITHIUM CARBONATE
     Dosage: INCREASED DOSE IN RESPONSE TO EVENTS OF RACING THOUGHTS, ELEVATED MOOD AND GRANDIOSITY.
     Route: 065
  4. PAROXETINE [Concomitant]
     Active Substance: PAROXETINE\PAROXETINE HYDROCHLORIDE
     Indication: DEPRESSION
     Route: 065
  5. PAROXETINE [Concomitant]
     Active Substance: PAROXETINE\PAROXETINE HYDROCHLORIDE
     Dosage: INCREASE IN RESPONSE TO EVENTS OF DEPRESSIVE SYMPTOMS AND ANHEDONIA
     Route: 065
  6. PEG-INTERFERON ALFA 2A [Suspect]
     Active Substance: PEGINTERFERON ALFA-2A
     Indication: HEPATITIS C
     Dosage: REPORTED AS PEGYLATED INTERFERON
     Route: 058
     Dates: start: 200201
  7. LITHIUM CARBONATE. [Concomitant]
     Active Substance: LITHIUM CARBONATE
     Indication: MANIA
     Route: 065

REACTIONS (6)
  - Anhedonia [Recovered/Resolved]
  - Depressive symptom [Recovered/Resolved]
  - Maternal exposure during pregnancy [Unknown]
  - Tachyphrenia [Recovered/Resolved]
  - Elevated mood [Recovered/Resolved]
  - Grandiosity [Recovered/Resolved]
